FAERS Safety Report 5710126-8 (Version None)
Quarter: 2008Q2

REPORT INFORMATION
  Report Type: 
  Country: None (occurrence: None)
  Receive Date: 20080418
  Receipt Date: 20071130
  Transmission Date: 20081010
  Serious: No
  Sender: FDA-Public Use
  Company Number: US-ASTRAZENECA-2007UW27422

PATIENT
  Age: 62 Year
  Sex: Female
  Weight: 81.6 kg

DRUGS (3)
  1. METOPROLOL SUCCINATE [Suspect]
     Indication: HYPERTENSION
     Route: 048
  2. LIPITOR [Concomitant]
  3. PAIN MEDICATION [Concomitant]

REACTIONS (3)
  - ASTHMA [None]
  - ILL-DEFINED DISORDER [None]
  - PALPITATIONS [None]
